FAERS Safety Report 6564839-9 (Version None)
Quarter: 2010Q1

REPORT INFORMATION
  Report Type: 
  Country: None (occurrence: None)
  Receive Date: 20100201
  Receipt Date: 20100125
  Transmission Date: 20100710
  Serious: Yes (Other)
  Sender: FDA-Public Use
  Company Number: US-PFIZER INC-2009314311

PATIENT
  Sex: Female

DRUGS (2)
  1. GLIPIZIDE [Suspect]
  2. GLIPIZIDE [Suspect]

REACTIONS (5)
  - BLOOD GLUCOSE FLUCTUATION [None]
  - HERPES ZOSTER [None]
  - RASH PRURITIC [None]
  - SURGERY [None]
  - TINNITUS [None]
